FAERS Safety Report 6902475-2 (Version None)
Quarter: 2010Q3

REPORT INFORMATION
  Report Type: 
  Country: None (occurrence: None)
  Receive Date: 20100802
  Receipt Date: 20100802
  Transmission Date: 20110219
  Serious: Yes (Death, Hospitalization)
  Sender: FDA-Public Use
  Company Number: None

PATIENT
  Age: 88 Year
  Sex: Female
  Weight: 59.1 kg

DRUGS (32)
  1. MULTAQ [Suspect]
     Indication: ATRIAL FIBRILLATION
     Dosage: 400MG TWICE DAILY BY MOUTH
     Route: 048
     Dates: start: 20100330, end: 20100405
  2. LEVAQUIN [Suspect]
     Indication: ATRIAL FIBRILLATION
     Dosage: 750MG  EVERY 48 HOURS BY MOUTH
     Route: 048
     Dates: start: 20100406, end: 20100406
  3. ACETAMINOPHEN [Concomitant]
  4. ALUMINUM HYDROXIDE [Concomitant]
  5. ASPIRIN [Concomitant]
  6. BISACODYL [Concomitant]
  7. CALCIUM CARBONATE- VITAMIN D [Concomitant]
  8. CILOSTAZOL [Concomitant]
  9. CLOPIDOGREL [Concomitant]
  10. CYANOCOBALAMIN [Concomitant]
  11. DIGOXIN [Concomitant]
  12. DILTIAZEM [Concomitant]
  13. DOXYCYCLINE [Concomitant]
  14. ENOXAPARIN SODIUM [Concomitant]
  15. FAMOTIDINE [Concomitant]
  16. ACETAMINOPHEN AND HYDROCODONE BITARTRATE [Concomitant]
  17. INSULIN NPH/REG [Concomitant]
  18. LACTULOSE [Concomitant]
  19. LORATADINE [Concomitant]
  20. LOVASTATIN [Concomitant]
  21. METHOCARBAMOL [Concomitant]
  22. METHYLPREDNISOLONE ACETATE [Concomitant]
  23. MULTI-VITAMIN [Concomitant]
  24. NITROGLYCERIN [Concomitant]
  25. ONDANSETRON [Concomitant]
  26. PANTOPRAZOLE [Concomitant]
  27. PREDNISONE [Concomitant]
  28. PROMETHAZINE [Concomitant]
  29. PROPOXYPENE [Concomitant]
  30. SENNA SYRUP [Concomitant]
  31. TEMAZEPAM [Concomitant]
  32. ALBUTEROL SULFATE NEB. [Concomitant]

REACTIONS (4)
  - ATRIAL FIBRILLATION [None]
  - CHRONIC OBSTRUCTIVE PULMONARY DISEASE [None]
  - TORSADE DE POINTES [None]
  - VENTRICULAR TACHYCARDIA [None]
